FAERS Safety Report 4420097-2 (Version None)
Quarter: 2004Q3

REPORT INFORMATION
  Report Type: 
  Country: None (occurrence: None)
  Receive Date: 20040806
  Receipt Date: 20040806
  Transmission Date: 20050211
  Serious: Yes (Hospitalization)
  Sender: FDA-Public Use
  Company Number: None

PATIENT
  Age: 58 Year
  Sex: Male
  Weight: 79.4 kg

DRUGS (11)
  1. LISINOPRIL [Suspect]
     Dosage: 5 MG QD BY MOUTH
     Dates: start: 20030221, end: 20040525
  2. GEMFIBROZIL [Concomitant]
  3. POTASSIUM CHLORIDE [Concomitant]
  4. FUROSEMIDE [Concomitant]
  5. MAGNESIUM OXIDE [Concomitant]
  6. ASPIRIN [Concomitant]
  7. FOLIC ACID [Concomitant]
  8. THIAMINE HCL [Concomitant]
  9. THIAMINE HCL [Concomitant]
  10. CALCIUM CARBONATE [Concomitant]
  11. NITROGLYCERIN [Concomitant]

REACTIONS (3)
  - DYSPNOEA [None]
  - RHINORRHOEA [None]
  - SWELLING [None]
